FAERS Safety Report 6569169-7 (Version None)
Quarter: 2010Q1

REPORT INFORMATION
  Report Type: 
  Country: None (occurrence: None)
  Receive Date: 20100201
  Receipt Date: 20100201
  Transmission Date: 20100710
  Serious: No
  Sender: FDA-Public Use
  Company Number: None

PATIENT
  Age: 79 Year
  Sex: Male
  Weight: 68.2 kg

DRUGS (1)
  1. RISPERIDONE [Suspect]
     Dosage: 1 MG ONCE PO
     Route: 048
     Dates: start: 20091218, end: 20091218

REACTIONS (1)
  - HYPOTENSION [None]
